FAERS Safety Report 10017657 (Version 1)
Quarter: 2014Q1

REPORT INFORMATION
  Report Type: Report from Study
  Country: CA (occurrence: CA)
  Receive Date: 20140318
  Receipt Date: 20140318
  Transmission Date: 20141002
  Serious: Yes (Other)
  Sender: FDA-Public Use
  Company Number: CA-UCBSA-114632

PATIENT
  Age: 68 Year
  Sex: Female
  Weight: 70 kg

DRUGS (3)
  1. LACOSAMIDE [Suspect]
     Indication: CONVULSION
     Route: 048
  2. GLUCOSAMINE [Concomitant]
     Indication: PROPHYLAXIS
     Route: 048
     Dates: start: 200004
  3. MULTIVITAMINS [Concomitant]
     Indication: PROPHYLAXIS
     Route: 048
     Dates: start: 200004

REACTIONS (1)
  - Breast cancer [Unknown]
